FAERS Safety Report 24368920 (Version 1)
Quarter: 2024Q3

REPORT INFORMATION
  Report Type: Report from Study
  Country: US (occurrence: US)
  Receive Date: 20240927
  Receipt Date: 20240927
  Transmission Date: 20241017
  Serious: Yes (Other)
  Sender: ABBVIE
  Company Number: US-ABBVIE-5936437

PATIENT
  Sex: Female

DRUGS (2)
  1. RINVOQ [Suspect]
     Active Substance: UPADACITINIB
     Indication: Colitis ulcerative
     Dosage: RINVOQ 45 MG TABLET BY MOUTH ONCE DAILY FOR 4 WEEKS.?FORM STRENGTH: 15 MILLIGRAM, LAT ADMIN DATE-...
     Route: 048
     Dates: start: 20230610
  2. RINVOQ [Suspect]
     Active Substance: UPADACITINIB
     Indication: Colitis ulcerative
     Dosage: FORM STRENGTH: 15 MILLIGRAM
     Route: 048
     Dates: start: 20230708

REACTIONS (5)
  - Fall [Unknown]
  - Back pain [Not Recovered/Not Resolved]
  - Hip fracture [Unknown]
  - Constipation [Not Recovered/Not Resolved]
  - Arthralgia [Not Recovered/Not Resolved]
